FAERS Safety Report 16474622 (Version 1)
Quarter: 2019Q3

REPORT INFORMATION
  Report Type: Spontaneous
  Country: US (occurrence: US)
  Receive Date: 20190624
  Receipt Date: 20190624
  Transmission Date: 20191004
  Serious: Yes (Other)
  Sender: FDA-Public Use
  Company Number: None

PATIENT
  Age: 53 Year
  Sex: Male
  Weight: 98 kg

DRUGS (5)
  1. TRULICITY [Suspect]
     Active Substance: DULAGLUTIDE
     Indication: TYPE 2 DIABETES MELLITUS
     Dosage: ?          OTHER FREQUENCY:ONCE WEEKLY;?
     Route: 058
     Dates: start: 20190510, end: 20190621
  2. HYDROCODONE-ACETAMINOPHEN 5-235 MG [Concomitant]
     Dates: start: 20190417, end: 20190510
  3. ATORVASTATIN 40 MG [Concomitant]
     Active Substance: ATORVASTATIN
     Dates: start: 20160224
  4. TRULICITY [Suspect]
     Active Substance: DULAGLUTIDE
     Indication: TYPE 2 DIABETES MELLITUS
     Dosage: ?          OTHER FREQUENCY:ONCE WEEKLY;?
     Route: 058
     Dates: start: 20190405, end: 20190509
  5. LOSARTAN-HYDROCHLOROTHIAZIDE 100-12.5 MG [Concomitant]
     Dates: start: 20170330

REACTIONS (4)
  - Hypercalcaemia [None]
  - Weight decreased [None]
  - Decreased appetite [None]
  - Acute kidney injury [None]

NARRATIVE: CASE EVENT DATE: 20190621
